FAERS Safety Report 18410439 (Version 2)
Quarter: 2020Q4

REPORT INFORMATION
  Report Type: Spontaneous
  Country: US (occurrence: US)
  Receive Date: 20201021
  Receipt Date: 20201024
  Transmission Date: 20210114
  Serious: No
  Sender: FDA-Public Use
  Company Number: US-SA-2020SA296798

PATIENT

DRUGS (5)
  1. AUROVELA FE 1/20 [Concomitant]
     Active Substance: ETHINYL ESTRADIOL\NORETHINDRONE ACETATE
  2. FOLIC ACID. [Concomitant]
     Active Substance: FOLIC ACID
  3. TARINA FE [Concomitant]
  4. DUPIXENT [Suspect]
     Active Substance: DUPILUMAB
     Indication: DERMATITIS ATOPIC
     Dosage: 2 DF, 1X
     Route: 058
     Dates: start: 20200723, end: 20200723
  5. DUPIXENT [Suspect]
     Active Substance: DUPILUMAB
     Dosage: 300 MG
     Route: 058
     Dates: start: 20200807

REACTIONS (2)
  - Dermatitis atopic [Not Recovered/Not Resolved]
  - Product dose omission issue [Not Recovered/Not Resolved]

NARRATIVE: CASE EVENT DATE: 20200930
